FAERS Safety Report 8401882-9 (Version None)
Quarter: 2012Q2

REPORT INFORMATION
  Report Type: 
  Country: None (occurrence: None)
  Receive Date: 20120601
  Receipt Date: 20110801
  Transmission Date: 20120825
  Serious: No
  Sender: FDA-Public Use
  Company Number: US-ABBOTT-11P-163-0843374-00

PATIENT
  Sex: Male
  Weight: 55.388 kg

DRUGS (1)
  1. MARINOL [Suspect]
     Indication: PAIN
     Route: 048
     Dates: start: 20090101, end: 20090101

REACTIONS (1)
  - PAIN [None]
